FAERS Safety Report 6860063-0 (Version None)
Quarter: 2010Q3

REPORT INFORMATION
  Report Type: 
  Country: None (occurrence: None)
  Receive Date: 20100720
  Receipt Date: 20100713
  Transmission Date: 20110219
  Serious: Yes (Other)
  Sender: FDA-Public Use
  Company Number: JP-BRISTOL-MYERS SQUIBB COMPANY-15179252

PATIENT
  Age: 51 Year
  Sex: Female

DRUGS (18)
  1. ABILIFY [Suspect]
     Indication: DEPRESSION
     Dosage: 10JUN10:12MG DAILY
     Route: 048
     Dates: end: 20100617
  2. REMERON [Suspect]
     Dosage: 10JUN10:45MG/D 10JUN-04JUL10:30MG DAILY;25D JUL10:15MG DAILY  TILL 09JUN10:15MG TID
     Route: 048
  3. CYMBALTA [Suspect]
     Dosage: 10JUN10:1200MG/D 10JUN-16JUN10:20MG;QD 17JUN10:40MG/D 60MG/D
     Route: 048
     Dates: start: 20100610, end: 20100630
  4. LIMAS [Concomitant]
     Dosage: TOOK 1200 MG ON 10-JUN-2010
     Dates: start: 20100520
  5. SILECE [Concomitant]
     Dates: end: 20100630
  6. GASMOTIN [Concomitant]
  7. TAKEPRON [Concomitant]
  8. ALOSITOL [Concomitant]
     Dosage: TABS
  9. URSO 250 [Concomitant]
  10. CRESTOR [Concomitant]
     Dosage: TABS
  11. TENORMIN [Concomitant]
     Dosage: TABS
  12. LOMERIZINE HCL [Concomitant]
     Dosage: TABS
  13. IBRUPROFEN [Concomitant]
  14. NAUZELIN [Concomitant]
  15. DEPAS [Concomitant]
  16. TIZANIDINE HCL [Concomitant]
  17. CYSTEINE [Concomitant]
  18. TRANSAMIN [Concomitant]

REACTIONS (1)
  - SEROTONIN SYNDROME [None]
